FAERS Safety Report 5605654-X (Version None)
Quarter: 2008Q1

REPORT INFORMATION
  Report Type: 
  Country: None (occurrence: None)
  Receive Date: 20080123
  Receipt Date: 20080109
  Transmission Date: 20080703
  Serious: Yes (Hospitalization)
  Sender: FDA-Public Use
  Company Number: 2008S1000470

PATIENT
  Age: 36 Year
  Sex: Female

DRUGS (1)
  1. KETOPROFEN [Suspect]
     Indication: DRUG USE FOR UNKNOWN INDICATION
     Dosage: ; ORAL
     Route: 048
     Dates: start: 20071022, end: 20071023

REACTIONS (3)
  - ANGIOEDEMA [None]
  - DYSPNOEA [None]
  - PYREXIA [None]
